FAERS Safety Report 23550949 (Version 1)
Quarter: 2024Q1

REPORT INFORMATION
  Report Type: Report from Study
  Country: BE (occurrence: BE)
  Receive Date: 20240221
  Receipt Date: 20240221
  Transmission Date: 20240410
  Serious: Yes (Death)
  Sender: FDA-Public Use
  Company Number: BE-ABBVIE-5648536

PATIENT
  Age: 77 Year
  Sex: Female

DRUGS (8)
  1. CARBIDOPA\LEVODOPA [Suspect]
     Active Substance: CARBIDOPA\LEVODOPA
     Indication: Parkinson^s disease
     Route: 065
     Dates: start: 20200706
  2. CARBIDOPA\LEVODOPA [Suspect]
     Active Substance: CARBIDOPA\LEVODOPA
     Dosage: MD: 5.0 ML, CD: 3.0 ML/H, ED: 1.5 ML DURING 24 HOURS, ED: 1.5 ML, CND: 1.5 ML/H DURING 24 HOURS
     Route: 050
     Dates: start: 20240105, end: 20240105
  3. CARBIDOPA\LEVODOPA [Suspect]
     Active Substance: CARBIDOPA\LEVODOPA
     Dosage: MD: 9.2 ML, CD: 3.0 ML/H, ED: 1.9 ML DURING 16 HOURS
     Route: 050
     Dates: start: 20230927, end: 20240105
  4. PRAMIPEXOLE [Concomitant]
     Active Substance: PRAMIPEXOLE\PRAMIPEXOLE DIHYDROCHLORIDE
     Indication: Product used for unknown indication
     Dosage: STRENGTH: 1.05  UNIT UNKNOWN, FREQUENCY TEXT: IN THE EVENING
  5. BENSERAZIDE\LEVODOPA [Concomitant]
     Active Substance: BENSERAZIDE\LEVODOPA
     Indication: Parkinson^s disease
     Dosage: 125 MG 1 TABLET, FREQUENCY TEXT: AT BEDTIME
  6. BENSERAZIDE\LEVODOPA [Concomitant]
     Active Substance: BENSERAZIDE\LEVODOPA
     Indication: Product used for unknown indication
     Dosage: FREQUENCY TEXT: 07.00, 12.00 , STRENGTH 250 UNIT UNKNOWN, 0.75 DOSAGE FORM
  7. BENSERAZIDE\LEVODOPA [Concomitant]
     Active Substance: BENSERAZIDE\LEVODOPA
     Indication: Product used for unknown indication
     Dosage: FREQUENCY TEXT: 18.00 , STRENGTH 250 UNIT UNKNOWN, 0.5 DOSAGE FORM
  8. AMANTADINE [Concomitant]
     Active Substance: AMANTADINE
     Indication: Product used for unknown indication
     Dosage: FREQUENCY TEXT: IN THE MORNING AND IN THE EVENING , STRENGTH 100 MG

REACTIONS (1)
  - Death [Fatal]
